FAERS Safety Report 9514889 (Version 1)
Quarter: 2013Q1

REPORT INFORMATION
  Report Type: Spontaneous
  Country: US (occurrence: None)
  Receive Date: 20130305
  Receipt Date: 20130305
  Transmission Date: 20140127
  Serious: Yes (Other)
  Sender: FDA-Public Use
  Company Number: 163-21880-12112353

PATIENT
  Age: 71 Year
  Sex: Female
  Weight: 77.11 kg

DRUGS (13)
  1. REVLIMID (LENALIDOMIDE) (25 MILLIGRAM, CAPSULES) [Suspect]
     Indication: PLASMA CELL MYELOMA
     Dosage: 25 MG, 21 IN 21 D, PO
     Route: 048
     Dates: start: 20100408
  2. MULTIVITAMINS (MULTIMVITAMINS) (UNKNOWN) [Concomitant]
  3. VITAMIN C [Concomitant]
  4. VITAMIN D (ERGOCALCIFEROL) (UNKNOWN) [Concomitant]
  5. ASPIRIN (ACETYLSALICYLIC ACID) (TABLETS) [Concomitant]
  6. CALTRATE 600 PLUS (CALCITE D) (UNKNOWN) [Concomitant]
  7. CARVEDILOL (CARVEDILOL) (UNKNOWN) [Concomitant]
  8. CENTRUM SILVER (CENTRUM SILVER) (TABLETS) [Concomitant]
  9. DEXAMETHASONE (DEXAMETHASONE) (UNKNOWN) [Concomitant]
  10. LANTUS (INSULIN GLARGINE) (UNKNOWN) [Concomitant]
  11. METFORMIN HCL (METFORMIN HYDROCHLORIDE) (UNKNOWN) [Concomitant]
  12. NIFEDICAL XL (NIFEDIPINE) (UNKNOWN) [Concomitant]
  13. SIMVASTATIN [Concomitant]

REACTIONS (1)
  - Anaemia [None]
